FAERS Safety Report 17184133 (Version 1)
Quarter: 2019Q4

REPORT INFORMATION
  Report Type: Spontaneous
  Country: US (occurrence: US)
  Receive Date: 20191219
  Receipt Date: 20191219
  Transmission Date: 20200122
  Serious: Yes (Life-Threatening, Hospitalization)
  Sender: FDA-Public Use
  Company Number: None

PATIENT
  Age: 49 Year
  Sex: Female

DRUGS (3)
  1. EMSAM [Suspect]
     Active Substance: SELEGILINE
     Indication: MAJOR DEPRESSION
  2. EMSAM [Concomitant]
     Active Substance: SELEGILINE
  3. REXULTI [Suspect]
     Active Substance: BREXPIPRAZOLE

REACTIONS (1)
  - Serotonin syndrome [None]
